FAERS Safety Report 11152916 (Version 2)
Quarter: 2015Q2

REPORT INFORMATION
  Report Type: Spontaneous
  Country: IT (occurrence: None)
  Receive Date: 20150528
  Receipt Date: 20150619
  Transmission Date: 20150821
  Serious: Yes (Other)
  Sender: FDA-Public Use
  Company Number: 8024330

PATIENT
  Sex: Male

DRUGS (3)
  1. EUTIROX [Suspect]
     Active Substance: LEVOTHYROXINE SODIUM
     Indication: POST PROCEDURAL HYPOTHYROIDISM
     Dates: start: 20120922
  2. LODOZ (BISELECT HYDROCHLOROTHIAZIDE, BISOPROLOL FUMARATE) [Concomitant]
  3. MICARDIS [Concomitant]
     Active Substance: TELMISARTAN

REACTIONS (4)
  - Malaise [None]
  - Blood thyroid stimulating hormone increased [None]
  - Hypertensive crisis [None]
  - No therapeutic response [None]

NARRATIVE: CASE EVENT DATE: 2015
